FAERS Safety Report 5895551-7 (Version None)
Quarter: 2008Q3

REPORT INFORMATION
  Report Type: 
  Country: None (occurrence: None)
  Receive Date: 20080924
  Receipt Date: 20080115
  Transmission Date: 20090109
  Serious: Yes (Other)
  Sender: FDA-Public Use
  Company Number: US-ASTRAZENECA-2006UW07848

PATIENT
  Age: 49 Year
  Sex: Female
  Weight: 56.7 kg

DRUGS (5)
  1. SEROQUEL [Suspect]
     Indication: DEPRESSION
     Dosage: 25 TO 100 MG
     Route: 048
     Dates: start: 20030601, end: 20070101
  2. SEROQUEL [Suspect]
     Indication: INSOMNIA
     Dosage: 25 TO 100 MG
     Route: 048
     Dates: start: 20030601, end: 20070101
  3. LEXAPRO [Concomitant]
  4. XANAX [Concomitant]
  5. VALUM [Concomitant]

REACTIONS (1)
  - PANCREATITIS [None]
